FAERS Safety Report 4641078-X (Version None)
Quarter: 2005Q2

REPORT INFORMATION
  Report Type: 
  Country: None (occurrence: None)
  Receive Date: 20050419
  Receipt Date: 20050419
  Transmission Date: 20051028
  Serious: Yes (Hospitalization)
  Sender: FDA-Public Use
  Company Number: None

PATIENT
  Sex: Male
  Weight: 15.11 kg

DRUGS (6)
  1. CARBOPLATIN [Suspect]
     Dosage: SCT
     Dates: start: 20050314, end: 20050317
  2. MELPHALAN [Suspect]
     Dates: start: 20050321, end: 20050321
  3. ETOPOSIDE [Suspect]
     Dates: start: 20050321, end: 20050321
  4. IMIPENIM [Concomitant]
  5. VANCOMYCIN [Concomitant]
  6. VORICONAZOLE [Concomitant]

REACTIONS (10)
  - DYSPNOEA [None]
  - FATIGUE [None]
  - HAEMATOCRIT DECREASED [None]
  - HAEMOGLOBIN DECREASED [None]
  - HEART RATE INCREASED [None]
  - HEPATOMEGALY [None]
  - PLATELET COUNT DECREASED [None]
  - PYREXIA [None]
  - RESPIRATORY RATE INCREASED [None]
  - WHITE BLOOD CELL COUNT DECREASED [None]
